FAERS Safety Report 25751895 (Version 10)
Quarter: 2025Q4

REPORT INFORMATION
  Report Type: Spontaneous
  Country: UY (occurrence: UY)
  Receive Date: 20250902
  Receipt Date: 20251202
  Transmission Date: 20260119
  Serious: No
  Sender: PFIZER
  Company Number: UY-PFIZER INC-202500170606

PATIENT
  Age: 10 Year
  Sex: Female
  Weight: 25.1 kg

DRUGS (2)
  1. GENOTROPIN [Suspect]
     Active Substance: SOMATROPIN
     Indication: Short stature
     Dosage: 0.9 MG, 7 TIMES A WEEK
     Route: 058
     Dates: start: 20250813, end: 202508
  2. GENOTROPIN [Suspect]
     Active Substance: SOMATROPIN
     Dosage: UNK
     Dates: start: 2025, end: 20250908

REACTIONS (3)
  - Device leakage [Unknown]
  - Drug dose omission by device [Unknown]
  - Incorrect dose administered by device [Unknown]

NARRATIVE: CASE EVENT DATE: 20250801
